FAERS Safety Report 7029455-3 (Version None)
Quarter: 2010Q4

REPORT INFORMATION
  Report Type: 
  Country: None (occurrence: None)
  Receive Date: 20101005
  Receipt Date: 20100928
  Transmission Date: 20110411
  Serious: Yes (Death, Other)
  Sender: FDA-Public Use
  Company Number: US-AMGEN-QUU406199

PATIENT
  Sex: Female
  Weight: 47.7 kg

DRUGS (10)
  1. NPLATE [Suspect]
     Indication: IDIOPATHIC THROMBOCYTOPENIC PURPURA
     Route: 058
     Dates: start: 20100319, end: 20100325
  2. ULTRAM [Concomitant]
  3. ATIVAN [Concomitant]
  4. TYLENOL [Concomitant]
  5. CLOTRIMAZOLE [Concomitant]
  6. ROBITUSSIN [Concomitant]
  7. MORPHINE [Concomitant]
     Dates: start: 20100407
  8. LORTAB [Concomitant]
     Dates: start: 20100401
  9. AMICAR [Concomitant]
     Dates: start: 20100401
  10. CARBOPLATIN [Concomitant]

REACTIONS (5)
  - DEMENTIA [None]
  - IDIOPATHIC THROMBOCYTOPENIC PURPURA [None]
  - MUSCULAR WEAKNESS [None]
  - PLATELET COUNT DECREASED [None]
  - URINARY TRACT INFECTION [None]
